FAERS Safety Report 24313617 (Version 1)
Quarter: 2024Q3

REPORT INFORMATION
  Report Type: Spontaneous
  Country: HR (occurrence: HR)
  Receive Date: 20240912
  Receipt Date: 20240912
  Transmission Date: 20241017
  Serious: Yes (Life-Threatening, Other)
  Sender: FRESENIUS KABI
  Company Number: None

PATIENT
  Age: 75 Year
  Sex: Male
  Weight: 77 kg

DRUGS (1)
  1. OXALIPLATIN [Suspect]
     Active Substance: OXALIPLATIN
     Indication: Adenocarcinoma gastric
     Dosage: FORM OF ADMIN: CONCENTRATE FOR SOLUTION FOR INFUSION
     Route: 042
     Dates: start: 20240821, end: 20240821

REACTIONS (4)
  - Infusion related reaction [Recovered/Resolved]
  - Dyspnoea [Recovered/Resolved]
  - Asphyxia [Recovered/Resolved]
  - Erythema [Recovered/Resolved]

NARRATIVE: CASE EVENT DATE: 20240821
